FAERS Safety Report 7363806-5 (Version None)
Quarter: 2011Q1

REPORT INFORMATION
  Report Type: 
  Country: None (occurrence: None)
  Receive Date: 20110321
  Receipt Date: 20110314
  Transmission Date: 20110831
  Serious: Yes (Hospitalization, Other)
  Sender: FDA-Public Use
  Company Number: US-AMGEN-QUU421927

PATIENT
  Age: 38 Year
  Sex: Female

DRUGS (2)
  1. ENBREL [Suspect]
     Indication: RHEUMATOID ARTHRITIS
     Dosage: 50 MG, QWK
     Route: 058
     Dates: start: 20100520, end: 20101101
  2. METHOTREXATE [Concomitant]
     Dosage: 7.5 MG, QWK
     Dates: start: 20090101

REACTIONS (8)
  - ENDOMETRIOSIS [None]
  - RHEUMATOID ARTHRITIS [None]
  - HEADACHE [None]
  - HAEMOGLOBIN DECREASED [None]
  - OVARIAN CYST [None]
  - HYSTERECTOMY [None]
  - INTERVERTEBRAL DISC PROTRUSION [None]
  - VAGINAL HAEMORRHAGE [None]
